FAERS Safety Report 8140564-8 (Version None)
Quarter: 2012Q1

REPORT INFORMATION
  Report Type: 
  Country: None (occurrence: None)
  Receive Date: 20120216
  Receipt Date: 20120213
  Transmission Date: 20120608
  Serious: Yes (Disabling, Other)
  Sender: FDA-Public Use
  Company Number: US-PFIZER INC-2012006541

PATIENT
  Sex: Female
  Weight: 95.238 kg

DRUGS (2)
  1. HYDROCHLOROTHIAZIDE [Concomitant]
     Dosage: UNK
  2. LYRICA [Suspect]
     Indication: NEURALGIA
     Dosage: 150 MG, 2X/DAY
     Route: 048
     Dates: start: 20111001, end: 20111101

REACTIONS (8)
  - WEIGHT INCREASED [None]
  - DRUG INEFFECTIVE [None]
  - DIZZINESS [None]
  - WHEELCHAIR USER [None]
  - PAIN [None]
  - DISTURBANCE IN ATTENTION [None]
  - VISION BLURRED [None]
  - INSOMNIA [None]
